FAERS Safety Report 10027149 (Version 2)
Quarter: 2014Q1

REPORT INFORMATION
  Report Type: Spontaneous
  Country: US (occurrence: US)
  Receive Date: 20140321
  Receipt Date: 20140321
  Transmission Date: 20141002
  Serious: No
  Sender: FDA-Public Use
  Company Number: US-MYLANLABS-2013S1021256

PATIENT
  Age: 74 Year
  Sex: Female

DRUGS (6)
  1. ESTRADIOL TRANSDERMAL SYSTEM, USP [Suspect]
     Indication: OSTEOPENIA
     Dosage: CHANGE PATCH EVERY WEEK.
     Route: 062
     Dates: start: 20130725, end: 20130816
  2. ESTRADIOL TRANSDERMAL SYSTEM, USP [Suspect]
     Indication: OSTEOPOROSIS PROPHYLAXIS
     Dosage: CHANGE PATCH EVERY WEEK.
     Route: 062
     Dates: start: 20130725, end: 20130816
  3. LEVOTHYROXINE SODIUM [Concomitant]
  4. KLONOPIN [Concomitant]
  5. VITAMIN D [Concomitant]
  6. ZANTAC [Concomitant]

REACTIONS (5)
  - Eye irritation [Recovered/Resolved]
  - Glossodynia [Recovered/Resolved]
  - Lacrimation increased [Recovered/Resolved]
  - Nasal congestion [Recovered/Resolved]
  - Nasal discomfort [Recovered/Resolved]
